FAERS Safety Report 16569639 (Version 11)
Quarter: 2020Q2

REPORT INFORMATION
  Report Type: Report from Study
  Country: US (occurrence: US)
  Receive Date: 20190715
  Receipt Date: 20200624
  Transmission Date: 20200713
  Serious: Yes (Hospitalization, Other)
  Sender: FDA-Public Use
  Company Number: US-ROCHE-2245404

PATIENT
  Age: 68 Year
  Sex: Male
  Weight: 84.6 kg

DRUGS (19)
  1. IDARUBICIN [Concomitant]
     Active Substance: IDARUBICIN
  2. GUADECITABINE [Suspect]
     Active Substance: GUADECITABINE
     Route: 058
     Dates: start: 20191230
  3. AMIODARONE [Concomitant]
     Active Substance: AMIODARONE
  4. AMIDARONE [Concomitant]
     Active Substance: AMIODARONE
  5. ATEZOLIZUMAB. [Suspect]
     Active Substance: ATEZOLIZUMAB
     Route: 042
     Dates: start: 20200116
  6. AZACITIDINE. [Suspect]
     Active Substance: AZACITIDINE
     Indication: MYELODYSPLASTIC SYNDROME
     Route: 065
  7. ROCEPHIN [Concomitant]
     Active Substance: CEFTRIAXONE SODIUM
     Route: 042
     Dates: start: 20200403, end: 20200407
  8. VIDAZA [Concomitant]
     Active Substance: AZACITIDINE
  9. GUADECITABINE [Suspect]
     Active Substance: GUADECITABINE
     Route: 058
     Dates: start: 20190803
  10. ATEZOLIZUMAB. [Suspect]
     Active Substance: ATEZOLIZUMAB
     Indication: MYELODYSPLASTIC SYNDROME
     Route: 042
     Dates: start: 20190110
  11. GUADECITABINE [Suspect]
     Active Substance: GUADECITABINE
     Indication: MYELODYSPLASTIC SYNDROME
     Route: 058
     Dates: start: 20181224
  12. ATEZOLIZUMAB. [Suspect]
     Active Substance: ATEZOLIZUMAB
     Route: 042
     Dates: start: 20190820
  13. ATEZOLIZUMAB. [Suspect]
     Active Substance: ATEZOLIZUMAB
     Route: 042
     Dates: start: 20200410
  14. ELIQUIS [Concomitant]
     Active Substance: APIXABAN
     Route: 065
  15. DRONEDARONE [Concomitant]
     Active Substance: DRONEDARONE
     Route: 065
  16. AUGMENTIN [Concomitant]
     Active Substance: AMOXICILLIN\CLAVULANATE POTASSIUM
     Route: 048
     Dates: start: 20200403, end: 20200407
  17. GUADECITABINE [Suspect]
     Active Substance: GUADECITABINE
     Route: 058
     Dates: start: 20200407
  18. RED BLOOD CELLS, CONCENTRATED [Concomitant]
     Active Substance: HUMAN RED BLOOD CELL
  19. ARA-C [Concomitant]
     Active Substance: CYTARABINE

REACTIONS (9)
  - Febrile neutropenia [Recovered/Resolved]
  - Atrial fibrillation [Recovered/Resolved]
  - Dental caries [Recovered/Resolved]
  - Atrial fibrillation [Unknown]
  - Atrial fibrillation [Unknown]
  - Aspartate aminotransferase increased [Recovered/Resolved]
  - Noninfective sialoadenitis [Recovered/Resolved]
  - Cellulitis [Recovered/Resolved]
  - Alanine aminotransferase increased [Recovered/Resolved]

NARRATIVE: CASE EVENT DATE: 20190110
